FAERS Safety Report 15782769 (Version 1)
Quarter: 2019Q1

REPORT INFORMATION
  Report Type: Spontaneous
  Country: US (occurrence: US)
  Receive Date: 20190102
  Receipt Date: 20190102
  Transmission Date: 20190417
  Serious: No
  Sender: FDA-Public Use
  Company Number: US-ASTRAZENECA-2018SF64498

PATIENT
  Age: 1000 Month
  Sex: Male
  Weight: 79.4 kg

DRUGS (8)
  1. MUCINEX [Concomitant]
     Active Substance: GUAIFENESIN
     Indication: BRONCHITIS CHRONIC
     Route: 048
  2. SYMBICORT [Suspect]
     Active Substance: BUDESONIDE\FORMOTEROL FUMARATE DIHYDRATE
     Indication: CHRONIC OBSTRUCTIVE PULMONARY DISEASE
     Dosage: 80/4.5 MCG, TWO INHALATIONS, EVERY TWELVE HOURS
     Route: 055
     Dates: start: 20181202
  3. SYMBICORT [Suspect]
     Active Substance: BUDESONIDE\FORMOTEROL FUMARATE DIHYDRATE
     Indication: BRONCHITIS CHRONIC
     Dosage: 80/4.5 MCG, TWO INHALATIONS, EVERY TWELVE HOURS
     Route: 055
     Dates: start: 20181202
  4. SYMBICORT [Suspect]
     Active Substance: BUDESONIDE\FORMOTEROL FUMARATE DIHYDRATE
     Indication: CHRONIC OBSTRUCTIVE PULMONARY DISEASE
     Dosage: 80/4.5 MCG, TWO INHALATIONS, EVERY TWELVE HOURS
     Route: 055
     Dates: start: 201711, end: 201711
  5. FLONASE [Concomitant]
     Active Substance: FLUTICASONE PROPIONATE
     Indication: BRONCHITIS CHRONIC
     Dosage: ONE NASAL SPRAY, DAILY
     Route: 045
  6. SYMBICORT [Suspect]
     Active Substance: BUDESONIDE\FORMOTEROL FUMARATE DIHYDRATE
     Indication: BRONCHITIS CHRONIC
     Dosage: 80/4.5 MCG, TWO INHALATIONS, EVERY TWELVE HOURS
     Route: 055
     Dates: start: 201711, end: 201711
  7. SYMBICORT [Suspect]
     Active Substance: BUDESONIDE\FORMOTEROL FUMARATE DIHYDRATE
     Indication: COUGH
     Dosage: 80/4.5 MCG, TWO INHALATIONS, EVERY TWELVE HOURS
     Route: 055
     Dates: start: 201711, end: 201711
  8. SYMBICORT [Suspect]
     Active Substance: BUDESONIDE\FORMOTEROL FUMARATE DIHYDRATE
     Indication: COUGH
     Dosage: 80/4.5 MCG, TWO INHALATIONS, EVERY TWELVE HOURS
     Route: 055
     Dates: start: 20181202

REACTIONS (4)
  - Cough [Unknown]
  - Dysphonia [Recovered/Resolved]
  - Laryngitis [Not Recovered/Not Resolved]
  - Off label use [Unknown]

NARRATIVE: CASE EVENT DATE: 201711
